FAERS Safety Report 12941565 (Version 1)
Quarter: 2016Q4

REPORT INFORMATION
  Report Type: Spontaneous
  Country: GB (occurrence: GB)
  Receive Date: 20161115
  Receipt Date: 20161115
  Transmission Date: 20170207
  Serious: Yes (Other)
  Sender: FDA-Public Use
  Company Number: GB-CONCORDIA PHARMACEUTICALS INC.-GSH201611-005533

PATIENT
  Age: 45 Year
  Sex: Female
  Weight: 60.32 kg

DRUGS (4)
  1. PREDNISOLONE. [Suspect]
     Active Substance: PREDNISOLONE
     Indication: PEAK EXPIRATORY FLOW RATE DECREASED
     Route: 048
     Dates: start: 20161017
  2. AMOXICILLIN. [Concomitant]
     Active Substance: AMOXICILLIN
  3. FOSTAIR [Concomitant]
     Active Substance: BECLOMETHASONE\FORMOTEROL
  4. VENTOLIN [Concomitant]
     Active Substance: ALBUTEROL SULFATE

REACTIONS (1)
  - Muscle atrophy [Unknown]

NARRATIVE: CASE EVENT DATE: 20161023
